FAERS Safety Report 6515858-X (Version None)
Quarter: 2009Q4

REPORT INFORMATION
  Report Type: 
  Country: None (occurrence: None)
  Receive Date: 20091211
  Receipt Date: 20090113
  Transmission Date: 20100525
  Serious: Yes (Other)
  Sender: FDA-Public Use
  Company Number: ALL1-2009-00091

PATIENT
  Age: 12 Year
  Sex: Male
  Weight: 63.5 kg

DRUGS (1)
  1. ADDERALL XR 10 [Suspect]
     Indication: ATTENTION DEFICIT/HYPERACTIVITY DISORDER
     Dosage: MG, 1X/DAY:QD, ORAL
     Route: 048
     Dates: start: 20080701, end: 20081230

REACTIONS (5)
  - FEELING ABNORMAL [None]
  - INSOMNIA [None]
  - NEGATIVISM [None]
  - TIC [None]
  - WEIGHT DECREASED [None]
